FAERS Safety Report 6482689-9 (Version None)
Quarter: 2009Q4

REPORT INFORMATION
  Report Type: 
  Country: None (occurrence: None)
  Receive Date: 20091209
  Receipt Date: 20091201
  Transmission Date: 20100525
  Serious: Yes (Other)
  Sender: FDA-Public Use
  Company Number: US-BAYER-200938619NA

PATIENT
  Age: 37 Year
  Sex: Female
  Weight: 101 kg

DRUGS (1)
  1. MIRENA [Suspect]
     Indication: CONTRACEPTION
     Route: 015
     Dates: start: 20091016, end: 20091103

REACTIONS (3)
  - ABORTION SPONTANEOUS [None]
  - COMPLICATION OF DEVICE REMOVAL [None]
  - MEDICATION ERROR [None]
